FAERS Safety Report 21822335 (Version 1)
Quarter: 2023Q1

REPORT INFORMATION
  Report Type: Spontaneous
  Country: US (occurrence: None)
  Receive Date: 20230105
  Receipt Date: 20230105
  Transmission Date: 20230418
  Serious: No
  Sender: FDA-Public Use
  Company Number: 2022A411144

PATIENT

DRUGS (6)
  1. FARXIGA [Suspect]
     Active Substance: DAPAGLIFLOZIN PROPANEDIOL
     Dosage: 5.0MG UNKNOWN
     Route: 048
  2. LORATADINE [Concomitant]
     Active Substance: LORATADINE
     Route: 065
  3. PROBIOTICS NOS [Concomitant]
     Active Substance: PROBIOTICS NOS
     Route: 065
  4. MUSHROOMS [Concomitant]
     Route: 065
  5. DIETARY SUPPLEMENT [Concomitant]
     Active Substance: DIETARY SUPPLEMENT
     Route: 065
  6. ALPHALEPOIC ACID [Concomitant]
     Route: 065

REACTIONS (4)
  - Pruritus [Recovered/Resolved]
  - Gastric disorder [Recovered/Resolved]
  - Intentional product misuse [Unknown]
  - Product use issue [Unknown]
